FAERS Safety Report 7086510-X (Version None)
Quarter: 2010Q4

REPORT INFORMATION
  Report Type: 
  Country: None (occurrence: None)
  Receive Date: 20101105
  Receipt Date: 20101029
  Transmission Date: 20110411
  Serious: Yes (Hospitalization)
  Sender: FDA-Public Use
  Company Number: SK-B.I. PHARMACEUTICALS,INC./RIDGEFIELD-2010-DE-05780DE

PATIENT
  Sex: Male
  Weight: 77 kg

DRUGS (9)
  1. PRETREATMENT (DABIGATRAN) [Suspect]
     Indication: CEREBROVASCULAR ACCIDENT PROPHYLAXIS
     Route: 048
     Dates: start: 20091118, end: 20100305
  2. PRETREATMENT [Suspect]
     Indication: ATRIAL FIBRILLATION
  3. GOPTEN [Concomitant]
     Indication: HYPERTENSION
     Dosage: 4 MG
     Route: 048
     Dates: start: 20090302
  4. CRESTON [Concomitant]
     Indication: DYSLIPIDAEMIA
     Dosage: 10 MG
     Route: 048
     Dates: start: 20051012
  5. PREONETAL [Concomitant]
     Indication: CORONARY ARTERY DISEASE
     Dosage: 70 MG
     Route: 048
     Dates: start: 20020214
  6. RYTMONORM SR [Concomitant]
     Indication: ATRIAL FIBRILLATION
     Dosage: 450 MG
     Route: 048
     Dates: start: 20060421
  7. TERTENSIF [Concomitant]
     Indication: HYPERTENSION
     Dosage: 1.5 MG
     Route: 048
     Dates: start: 20100317
  8. NTROMINT [Concomitant]
     Indication: CORONARY ARTERY DISEASE
     Dates: start: 20100319
  9. NTROMINT [Concomitant]
     Indication: ANGINA PECTORIS

REACTIONS (4)
  - COLITIS [None]
  - GASTROOESOPHAGEAL REFLUX DISEASE [None]
  - HAEMORRHOIDS [None]
  - MICROCYTIC ANAEMIA [None]
